FAERS Safety Report 20246043 (Version 2)
Quarter: 2022Q2

REPORT INFORMATION
  Report Type: Other
  Country: US (occurrence: None)
  Receive Date: 20211229
  Receipt Date: 20220427
  Transmission Date: 20220720
  Serious: Yes (Other)
  Sender: FDA-Public Use
  Company Number: US-ROCHE-2984210

PATIENT
  Sex: Female

DRUGS (1)
  1. XELODA [Suspect]
     Active Substance: CAPECITABINE
     Indication: Breast cancer metastatic
     Dosage: TAKE 3 TABLET(S) BY MOUTH EVERY MORNING AND TAKE 2 TABLET(S) BY MOUTH EVERY EVENING WITH A FULL GLAS
     Route: 048

REACTIONS (1)
  - Pulmonary thrombosis [Unknown]
